FAERS Safety Report 15539843 (Version 1)
Quarter: 2018Q4

REPORT INFORMATION
  Report Type: Spontaneous
  Country: FR (occurrence: FR)
  Receive Date: 20181023
  Receipt Date: 20181023
  Transmission Date: 20190205
  Serious: Yes (Hospitalization, Other)
  Sender: FDA-Public Use
  Company Number: FR-ACCORD-073664

PATIENT
  Age: 63 Year
  Sex: Male

DRUGS (2)
  1. MYCOPHENOLIC ACID. [Suspect]
     Active Substance: MYCOPHENOLIC ACID
     Indication: LUNG TRANSPLANT
     Dosage: 1000 MG, BID
     Route: 065
  2. TACROLIMUS. [Suspect]
     Active Substance: TACROLIMUS
     Indication: LUNG TRANSPLANT
     Dosage: SERUM TROUGH LEVESL BETWEEN 7 AND 8 UG/L
     Route: 065

REACTIONS (12)
  - Dysmetria [Unknown]
  - Lymphopenia [Unknown]
  - Brain abscess [Unknown]
  - Gait disturbance [Unknown]
  - Phaeohyphomycosis [Unknown]
  - Headache [Unknown]
  - Cerebellar syndrome [Unknown]
  - Ataxia [Unknown]
  - Aphasia [Unknown]
  - Off label use [Unknown]
  - Transient aphasia [Unknown]
  - Lung transplant rejection [Unknown]
